FAERS Safety Report 17839335 (Version 1)
Quarter: 2020Q2

REPORT INFORMATION
  Report Type: Spontaneous
  Country: FR (occurrence: FR)
  Receive Date: 20200529
  Receipt Date: 20200529
  Transmission Date: 20200714
  Serious: Yes (Hospitalization)
  Sender: FDA-Public Use
  Company Number: FR-GILEAD-2020-0467970

PATIENT
  Age: 69 Year
  Sex: Female

DRUGS (2)
  1. TALMANCO [Suspect]
     Active Substance: TADALAFIL
     Indication: SUICIDE ATTEMPT
     Dosage: 20 MG, 8 DF, SINGLE
     Route: 048
     Dates: start: 20200509, end: 20200509
  2. AMBRISENTAN [Suspect]
     Active Substance: AMBRISENTAN
     Indication: SUICIDE ATTEMPT
     Dosage: 5 MG 8 DF, QD
     Route: 048
     Dates: start: 20200509, end: 20200509

REACTIONS (4)
  - Somnolence [Recovered/Resolved]
  - Chest pain [Recovered/Resolved]
  - Tachycardia [Recovered/Resolved]
  - Vomiting [Recovered/Resolved]

NARRATIVE: CASE EVENT DATE: 20200510
